FAERS Safety Report 20988486 (Version 2)
Quarter: 2022Q3

REPORT INFORMATION
  Report Type: Spontaneous
  Country: JP (occurrence: JP)
  Receive Date: 20220621
  Receipt Date: 20220702
  Transmission Date: 20221026
  Serious: Yes (Life-Threatening, Other)
  Sender: FDA-Public Use
  Company Number: JP-TEVA-2022-JP-2047571

PATIENT
  Age: 77 Year
  Sex: Male

DRUGS (10)
  1. IRINOTECAN [Suspect]
     Active Substance: IRINOTECAN
     Indication: Neuroendocrine carcinoma
     Dosage: 2.1429 MG/M2 DAILY; ON DAY 1, 8, 15
     Route: 065
  2. IRINOTECAN [Suspect]
     Active Substance: IRINOTECAN
     Indication: Colorectal cancer
  3. CISPLATIN [Suspect]
     Active Substance: CISPLATIN
     Indication: Neuroendocrine carcinoma
     Dosage: 60 MG/M2 DAILY; ON DAY 1; EVERY 4 WEEKS
     Route: 065
  4. CISPLATIN [Suspect]
     Active Substance: CISPLATIN
     Indication: Colorectal cancer
  5. LEUCOVORIN [Suspect]
     Active Substance: LEUCOVORIN
     Indication: Neuroendocrine carcinoma
     Dosage: MODIFIED FOLFOX6 REGIMEN; SECOND-LINE TREATMENT
     Route: 065
  6. LEUCOVORIN [Suspect]
     Active Substance: LEUCOVORIN
     Indication: Colorectal cancer
  7. OXALIPLATIN [Suspect]
     Active Substance: OXALIPLATIN
     Indication: Neuroendocrine carcinoma
     Dosage: MODIFIED FOLFOX6 REGIMEN; SECOND-LINE TREATMENT ON DAY 1
     Route: 065
  8. OXALIPLATIN [Suspect]
     Active Substance: OXALIPLATIN
     Indication: Colorectal cancer
  9. FLUOROURACIL [Suspect]
     Active Substance: FLUOROURACIL
     Indication: Neuroendocrine carcinoma
     Dosage: INFUSION; MODIFIED FOLFOX6 REGIMEN; SECOND-LINE TREATMENT
     Route: 065
  10. FLUOROURACIL [Suspect]
     Active Substance: FLUOROURACIL
     Indication: Colorectal cancer
     Dosage: 2.4 G/M2 INFUSION OVER 40 HOURS; MODIFIED FOLFOX6 REGIMEN; SECOND-LINE TREATMENT
     Route: 065

REACTIONS (3)
  - Febrile neutropenia [Unknown]
  - Diarrhoea [Unknown]
  - Treatment failure [Unknown]
